FAERS Safety Report 4370509-8 (Version None)
Quarter: 2004Q2

REPORT INFORMATION
  Report Type: 
  Country: None (occurrence: None)
  Receive Date: 20040527
  Receipt Date: 20040513
  Transmission Date: 20050107
  Serious: Yes (Congenital Anomaly)
  Sender: FDA-Public Use
  Company Number: 2004-DE-02826GD

PATIENT
  Sex: Male

DRUGS (3)
  1. AZATHIOPRINE [Suspect]
     Dosage: SEE IMAGE
  2. FUROSEMIDE [Suspect]
     Dosage: SEE IMAGE
  3. PREDNISONE TAB [Suspect]
     Dosage: SEE IMAGE

REACTIONS (3)
  - DRUG EXPOSURE DURING PREGNANCY [None]
  - OESOPHAGEAL ATRESIA [None]
  - TRANSMISSION OF DRUG VIA SEMEN [None]
